FAERS Safety Report 17612708 (Version 3)
Quarter: 2020Q2

REPORT INFORMATION
  Report Type: Spontaneous
  Country: US (occurrence: US)
  Receive Date: 20200401
  Receipt Date: 20200608
  Transmission Date: 20200713
  Serious: No
  Sender: FDA-Public Use
  Company Number: US-ACTELION-A-NJ2020-203178

PATIENT
  Sex: Male
  Weight: 60.77 kg

DRUGS (5)
  1. UPTRAVI [Interacting]
     Active Substance: SELEXIPAG
     Dosage: 200 MCG, QD
     Route: 048
  2. UPTRAVI [Suspect]
     Active Substance: SELEXIPAG
     Indication: PULMONARY ARTERIAL HYPERTENSION
     Dosage: 600 MCG, BID
     Route: 048
  3. UPTRAVI [Interacting]
     Active Substance: SELEXIPAG
     Dosage: 200 MCG, BID
     Route: 048
  4. WARFARIN [Concomitant]
     Active Substance: WARFARIN
  5. ADEMPAS [Concomitant]
     Active Substance: RIOCIGUAT

REACTIONS (7)
  - Nausea [Unknown]
  - Drug interaction [Unknown]
  - Sluggishness [Unknown]
  - Diarrhoea [Unknown]
  - Hypotension [Unknown]
  - Flushing [Unknown]
  - Oxygen saturation decreased [Unknown]
